FAERS Safety Report 16682925 (Version 1)
Quarter: 2019Q3

REPORT INFORMATION
  Report Type: Report from Study
  Country: US (occurrence: US)
  Receive Date: 20190808
  Receipt Date: 20190808
  Transmission Date: 20191004
  Serious: Yes (Other)
  Sender: FDA-Public Use
  Company Number: PHEH2019US031864

PATIENT
  Sex: Female

DRUGS (1)
  1. PIQRAY [Suspect]
     Active Substance: ALPELISIB
     Route: 048

REACTIONS (3)
  - Diarrhoea [Unknown]
  - Glaucoma [Not Recovered/Not Resolved]
  - Visual impairment [Unknown]
